FAERS Safety Report 9849041 (Version 1)
Quarter: 2014Q1

REPORT INFORMATION
  Report Type: Spontaneous
  Country: CA (occurrence: CA)
  Receive Date: 20140128
  Receipt Date: 20140128
  Transmission Date: 20141002
  Serious: Yes (Other)
  Sender: FDA-Public Use
  Company Number: CA-009507513-1401CAN011213

PATIENT
  Age: 23 Year
  Sex: Female
  Weight: 73 kg

DRUGS (6)
  1. RIZATRIPTAN BENZOATE [Suspect]
     Dosage: 10 MG, PRN
     Route: 048
  2. RIZATRIPTAN BENZOATE [Suspect]
     Dosage: 15 MG, PRN
     Route: 048
  3. LAMICTAL [Concomitant]
     Route: 065
  4. SEROQUEL XR [Concomitant]
     Dosage: TABLET (EXTENDED RELEASE)
     Route: 065
  5. TYLENOL WITH CODEINE #2 [Concomitant]
     Dosage: UNK
     Route: 065
  6. VITAMIN D (UNSPECIFIED) [Concomitant]
     Route: 065

REACTIONS (11)
  - Pollakiuria [Unknown]
  - Muscular weakness [Unknown]
  - Hypoaesthesia [Unknown]
  - Somnolence [Unknown]
  - Chest discomfort [Unknown]
  - Dizziness [Unknown]
  - Dizziness [Unknown]
  - Dyspepsia [Unknown]
  - Fatigue [Unknown]
  - Headache [Unknown]
  - Paraesthesia [Unknown]
